FAERS Safety Report 6158921-8 (Version None)
Quarter: 2009Q2

REPORT INFORMATION
  Report Type: 
  Country: None (occurrence: None)
  Receive Date: 20090417
  Receipt Date: 20090414
  Transmission Date: 20091009
  Serious: Yes (Death)
  Sender: FDA-Public Use
  Company Number: DE-MERCK-0904DEU00052

PATIENT
  Sex: Male

DRUGS (1)
  1. EMEND [Suspect]
     Indication: NAUSEA
     Route: 048

REACTIONS (1)
  - DEATH [None]
